FAERS Safety Report 4660107-0 (Version None)
Quarter: 2005Q2

REPORT INFORMATION
  Report Type: 
  Country: None (occurrence: None)
  Receive Date: 20050510
  Receipt Date: 20050426
  Transmission Date: 20051028
  Serious: Yes (Hospitalization)
  Sender: FDA-Public Use
  Company Number: 2005BI004132

PATIENT
  Sex: Female

DRUGS (5)
  1. AVONEX [Suspect]
     Indication: MULTIPLE SCLEROSIS
     Dosage: IM
     Route: 030
     Dates: end: 20050218
  2. SYNTHROID [Concomitant]
  3. ATENOLOL [Concomitant]
  4. FLUOXETINE [Concomitant]
  5. BIRTH CONTROL PILL (NOS) [Concomitant]

REACTIONS (8)
  - CARDIAC DISORDER [None]
  - CARDIAC FAILURE CONGESTIVE [None]
  - CORONARY ANGIOPLASTY [None]
  - CORONARY ARTERY DISEASE [None]
  - HYPERCOAGULATION [None]
  - MYOCARDIAL INFARCTION [None]
  - PROCEDURAL COMPLICATION [None]
  - THROMBOSIS IN DEVICE [None]
